FAERS Safety Report 24998904 (Version 1)
Quarter: 2025Q1

REPORT INFORMATION
  Report Type: Spontaneous
  Country: US (occurrence: US)
  Receive Date: 20250222
  Receipt Date: 20250222
  Transmission Date: 20250408
  Serious: No
  Sender: SANOFI AVENTIS
  Company Number: US-SA-2025SA047233

PATIENT
  Sex: Female
  Weight: 56.82 kg

DRUGS (8)
  1. DUPIXENT [Suspect]
     Active Substance: DUPILUMAB
     Indication: Dermatitis atopic
     Dosage: 1 DF, QOW
     Route: 058
     Dates: start: 20250131
  2. TRIAMCINOLONE ACETONIDE [Concomitant]
     Active Substance: TRIAMCINOLONE ACETONIDE
  3. VTAMA [Concomitant]
     Active Substance: TAPINAROF
  4. TYLENOL [Concomitant]
     Active Substance: ACETAMINOPHEN
  5. IBUPROFEN [Concomitant]
     Active Substance: IBUPROFEN
  6. VITAMINS [Concomitant]
     Active Substance: VITAMINS
  7. ALEVE [Concomitant]
     Active Substance: NAPROXEN SODIUM
  8. BUPRENORPHINE AND NALOXONE [Concomitant]
     Active Substance: BUPRENORPHINE HYDROCHLORIDE\NALOXONE HYDROCHLORIDE

REACTIONS (5)
  - Dry skin [Recovering/Resolving]
  - Oral infection [Not Recovered/Not Resolved]
  - Rosacea [Not Recovered/Not Resolved]
  - Pruritus [Recovering/Resolving]
  - Dental operation [Unknown]
